FAERS Safety Report 11674736 (Version 1)
Quarter: 2015Q4

REPORT INFORMATION
  Report Type: Spontaneous
  Country: US (occurrence: US)
  Receive Date: 20151027
  Receipt Date: 20151027
  Transmission Date: 20160304
  Serious: No
  Sender: FDA-Public Use
  Company Number: US-ELI_LILLY_AND_COMPANY-US201008005426

PATIENT
  Sex: Female

DRUGS (2)
  1. FORTEO [Suspect]
     Active Substance: TERIPARATIDE
     Indication: OSTEOPOROSIS
     Dosage: 20 UG, DAILY (1/D)
  2. LIDOCAINE. [Concomitant]
     Active Substance: LIDOCAINE
     Dosage: EVERY THREE MONTHS

REACTIONS (5)
  - Dizziness [Unknown]
  - Muscle spasms [Recovered/Resolved]
  - Limb discomfort [Not Recovered/Not Resolved]
  - Palpitations [Unknown]
  - Arthralgia [Unknown]
